FAERS Safety Report 9737499 (Version 2)
Quarter: 2013Q4

REPORT INFORMATION
  Report Type: Spontaneous
  Country: NL (occurrence: NL)
  Receive Date: 20131206
  Receipt Date: 20131215
  Transmission Date: 20140711
  Serious: Yes (Death, Life-Threatening, Hospitalization)
  Sender: FDA-Public Use
  Company Number: NL-AMGEN-NLDSP2013085042

PATIENT
  Age: 96 Year
  Sex: Female

DRUGS (1)
  1. ARANESP [Suspect]
     Indication: NEPHROGENIC ANAEMIA
     Dosage: 80 MUG, QMO
     Route: 058
     Dates: start: 20080520

REACTIONS (3)
  - Death [Fatal]
  - Terminal state [Unknown]
  - Cerebral haemorrhage [Unknown]
